FAERS Safety Report 12955364 (Version 1)
Quarter: 2016Q4

REPORT INFORMATION
  Report Type: Spontaneous
  Country: US (occurrence: US)
  Receive Date: 20161118
  Receipt Date: 20161118
  Transmission Date: 20170207
  Serious: No
  Sender: FDA-Public Use
  Company Number: US-PERRIGO-16US016333

PATIENT
  Age: 65 Year
  Sex: Male
  Weight: 63.95 kg

DRUGS (2)
  1. DULCOLAX (BISACODYL) [Concomitant]
     Active Substance: BISACODYL
     Indication: COLONOSCOPY
     Dosage: UNKNOWN, UNKNOWN
     Route: 048
     Dates: start: 20160517, end: 20160517
  2. POLYETHYLENE GLYCOL 3350. [Suspect]
     Active Substance: POLYETHYLENE GLYCOL 3350
     Indication: COLONOSCOPY
     Dosage: 238 G, TWICE
     Route: 048
     Dates: start: 20160516, end: 20160517

REACTIONS (4)
  - Nausea [Recovered/Resolved]
  - Pain [Recovered/Resolved]
  - Drug ineffective for unapproved indication [Unknown]
  - Overdose [Recovered/Resolved]

NARRATIVE: CASE EVENT DATE: 20160516
